FAERS Safety Report 10660370 (Version 1)
Quarter: 2014Q4

REPORT INFORMATION
  Report Type: Spontaneous
  Country: US (occurrence: US)
  Receive Date: 20141217
  Receipt Date: 20141217
  Transmission Date: 20150529
  Serious: No
  Sender: FDA-Public Use
  Company Number: US-GLAXOSMITHKLINE-A1088308A

PATIENT

DRUGS (1)
  1. VOTRIENT [Suspect]
     Active Substance: PAZOPANIB HYDROCHLORIDE
     Indication: NEOPLASM MALIGNANT
     Dosage: 200 MG TABLETS TAKE 4 TABLETS (800 MG) BY MOUTH DAILY WITHOUT FOOD. DO NOT CRUSH
     Route: 048
     Dates: start: 20140403

REACTIONS (2)
  - Drug ineffective [Not Recovered/Not Resolved]
  - Neoplasm [Not Recovered/Not Resolved]
